FAERS Safety Report 19051464 (Version 1)
Quarter: 2021Q1

REPORT INFORMATION
  Report Type: Spontaneous
  Country: US (occurrence: US)
  Receive Date: 20210323
  Receipt Date: 20210323
  Transmission Date: 20210420
  Serious: No
  Sender: FDA-Public Use
  Company Number: None

PATIENT
  Age: 84 Year
  Sex: Female

DRUGS (1)
  1. RETACRIT [Suspect]
     Active Substance: EPOETIN ALFA-EPBX
     Indication: PANCYTOPENIA
     Dosage: OTHER DOSE:40,000 UNITS;   OTHER
     Route: 058
     Dates: start: 202003

REACTIONS (3)
  - Epistaxis [None]
  - Contusion [None]
  - Alopecia [None]

NARRATIVE: CASE EVENT DATE: 20200901
